FAERS Safety Report 6238277-2 (Version None)
Quarter: 2009Q2

REPORT INFORMATION
  Report Type: 
  Country: None (occurrence: None)
  Receive Date: 20090617
  Receipt Date: 20090617
  Transmission Date: 20091009
  Serious: No
  Sender: FDA-Public Use
  Company Number: None

PATIENT
  Age: 80 Year
  Sex: Female
  Weight: 109 kg

DRUGS (10)
  1. VANCOMYCIN [Suspect]
     Indication: STAPHYLOCOCCAL INFECTION
     Dosage: 1000 MG EVERY 12 HOURS IV DRIP
     Route: 041
     Dates: start: 20080811, end: 20080821
  2. LEVOFLOXACIN [Suspect]
     Dosage: 500 MG EVERY 24 HOURS IV DRIP
     Route: 041
     Dates: start: 20080813, end: 20080823
  3. CARVEDILOL [Concomitant]
  4. FLUCONAZOLE [Concomitant]
  5. ESOMEPRAZOLE MAGNESIUM [Concomitant]
  6. FUROSEMIDE [Concomitant]
  7. LISINOPRIL [Concomitant]
  8. MONTELUKAST [Concomitant]
  9. OXYBUTYNIN CHLORIDE [Concomitant]
  10. SERTRALINE [Concomitant]

REACTIONS (1)
  - RENAL FAILURE ACUTE [None]
